FAERS Safety Report 8430146-2 (Version None)
Quarter: 2012Q2

REPORT INFORMATION
  Report Type: 
  Country: None (occurrence: None)
  Receive Date: 20120612
  Receipt Date: 20120604
  Transmission Date: 20120825
  Serious: Yes (Hospitalization)
  Sender: FDA-Public Use
  Company Number: FI-ROCHE-1075186

PATIENT
  Age: 62 Year
  Sex: Male

DRUGS (5)
  1. RITUXIMAB [Suspect]
     Dates: start: 20111201
  2. PREDNISONE [Concomitant]
     Indication: WEGENER'S GRANULOMATOSIS
  3. MYCOPHENOLATE MOFETIL [Concomitant]
     Indication: WEGENER'S GRANULOMATOSIS
     Dates: start: 20111001
  4. MYCOPHENOLATE MOFETIL [Concomitant]
  5. RITUXIMAB [Suspect]
     Indication: WEGENER'S GRANULOMATOSIS
     Route: 042
     Dates: start: 20110601

REACTIONS (1)
  - LARYNGEAL STENOSIS [None]
